FAERS Safety Report 11880115 (Version 1)
Quarter: 2015Q4

REPORT INFORMATION
  Report Type: Spontaneous
  Country: US (occurrence: None)
  Receive Date: 20151229
  Receipt Date: 20151229
  Transmission Date: 20160305
  Serious: No
  Sender: FDA-Public Use
  Company Number: 1210513-2015-00160

PATIENT
  Age: 61 Year
  Sex: Male
  Weight: 72.58 kg

DRUGS (3)
  1. EAR WAX KIT WELL AT WALGREENS [Suspect]
     Active Substance: CARBAMIDE PEROXIDE
     Indication: EXCESSIVE CERUMEN PRODUCTION
     Dosage: 5-10 DROPS 3X/DAY
  2. HYDROCODINE [Concomitant]
  3. TOMAZINE [Concomitant]

REACTIONS (2)
  - Deafness unilateral [None]
  - Otorrhoea [None]

NARRATIVE: CASE EVENT DATE: 20151211
